FAERS Safety Report 16010635 (Version 1)
Quarter: 2019Q1

REPORT INFORMATION
  Report Type: Spontaneous
  Country: AU (occurrence: AU)
  Receive Date: 20190225
  Receipt Date: 20190225
  Transmission Date: 20190418
  Serious: Yes (Hospitalization, Other)
  Sender: FDA-Public Use
  Company Number: AU-009507513-1902AUS006590

PATIENT
  Age: 51 Year
  Sex: Male

DRUGS (5)
  1. SINEMET CR [Suspect]
     Active Substance: CARBIDOPA\LEVODOPA
     Indication: PARKINSON^S DISEASE
     Dosage: UNK, OVERNIGHT
     Dates: start: 2018
  2. KINSON [Suspect]
     Active Substance: CARBIDOPA\LEVODOPA
     Indication: PARKINSON^S DISEASE
     Dosage: 1 TABLET (25/100 MILLIGRAM), UNK
  3. SINEMET [Suspect]
     Active Substance: CARBIDOPA\LEVODOPA
     Indication: PARKINSON^S DISEASE
     Dosage: 3 HALF TABLETS DAILY
     Route: 048
  4. KINSON [Suspect]
     Active Substance: CARBIDOPA\LEVODOPA
     Dosage: 3 TABLETS (25/100 MILLIGRAM) DAILY
  5. INSULIN [Concomitant]
     Active Substance: INSULIN NOS
     Indication: TYPE 1 DIABETES MELLITUS
     Dosage: UNK

REACTIONS (17)
  - Blood glucose decreased [Unknown]
  - Blood glucose increased [Unknown]
  - Aggression [Unknown]
  - Somnolence [Unknown]
  - Overdose [Unknown]
  - Memory impairment [Unknown]
  - Insomnia [Unknown]
  - Dementia [Recovering/Resolving]
  - Abnormal dreams [Unknown]
  - Confusional state [Unknown]
  - Intentional self-injury [Unknown]
  - Neoplasm malignant [Unknown]
  - Psychotic disorder [Recovering/Resolving]
  - Tremor [Unknown]
  - Nightmare [Unknown]
  - Diabetes mellitus inadequate control [Unknown]
  - Hypotension [Unknown]

NARRATIVE: CASE EVENT DATE: 2018
